FAERS Safety Report 7163914-8 (Version None)
Quarter: 2010Q4

REPORT INFORMATION
  Report Type: 
  Country: None (occurrence: None)
  Receive Date: 20101202
  Receipt Date: 20101119
  Transmission Date: 20110411
  Serious: No
  Sender: FDA-Public Use
  Company Number: 016729

PATIENT
  Sex: Female
  Weight: 66 kg

DRUGS (1)
  1. KEPPRA [Suspect]
     Indication: CONVULSION
     Dosage: 1500 MG BID ORAL
     Route: 048

REACTIONS (3)
  - FEELING ABNORMAL [None]
  - GRAND MAL CONVULSION [None]
  - TABLET ISSUE [None]
